FAERS Safety Report 5157516-2 (Version None)
Quarter: 2006Q4

REPORT INFORMATION
  Report Type: 
  Country: None (occurrence: None)
  Receive Date: 20061115
  Receipt Date: 20061031
  Transmission Date: 20070319
  Serious: Yes (Hospitalization)
  Sender: FDA-Public Use
  Company Number: 2006PV024244

PATIENT
  Age: 54 Year
  Sex: Female
  Weight: 117.028 kg

DRUGS (13)
  1. BYETTA [Suspect]
     Indication: DIABETES MELLITUS NON-INSULIN-DEPENDENT
     Dosage: 10 MCG;BID;SC
     Route: 058
     Dates: start: 20060422, end: 20060808
  2. METFORMIN HCL [Concomitant]
  3. HYDROCODONE [Concomitant]
  4. METHOCARBAN [Concomitant]
  5. GABAPENTIN [Concomitant]
  6. CYMBALTA [Concomitant]
  7. SEROQUEL [Concomitant]
  8. TRAZODONE HCL [Concomitant]
  9. NEXIUM [Concomitant]
  10. PREMPRO 0.25/2.5MG [Concomitant]
  11. VITAMIN B-12 [Concomitant]
  12. FISH OIL [Concomitant]
  13. STOOL SOFTENER [Concomitant]

REACTIONS (36)
  - ABDOMINAL DISTENSION [None]
  - ALANINE AMINOTRANSFERASE INCREASED [None]
  - ANAEMIA [None]
  - ASPARTATE AMINOTRANSFERASE INCREASED [None]
  - BLOOD ALKALINE PHOSPHATASE INCREASED [None]
  - BLOOD IRON DECREASED [None]
  - CONDITION AGGRAVATED [None]
  - CONFUSIONAL STATE [None]
  - DIARRHOEA [None]
  - DIZZINESS [None]
  - ERUCTATION [None]
  - FAECES DISCOLOURED [None]
  - FATIGUE [None]
  - GASTROOESOPHAGEAL REFLUX DISEASE [None]
  - HEADACHE [None]
  - HEMIPARESIS [None]
  - HEPATIC ENZYME INCREASED [None]
  - HEPATITIS E [None]
  - HERPES ZOSTER [None]
  - HYPERTENSION [None]
  - LOCALISED OEDEMA [None]
  - MALAISE [None]
  - MENORRHAGIA [None]
  - MUSCLE SPASMS [None]
  - MUSCULAR WEAKNESS [None]
  - NAUSEA [None]
  - OEDEMA PERIPHERAL [None]
  - PAIN [None]
  - SKIN LESION [None]
  - SOMNOLENCE [None]
  - SPEECH DISORDER [None]
  - STOMATITIS [None]
  - SYNCOPE [None]
  - TRANSIENT ISCHAEMIC ATTACK [None]
  - VOMITING [None]
  - WHITE BLOOD CELL COUNT DECREASED [None]
